FAERS Safety Report 17942535 (Version 1)
Quarter: 2020Q2

REPORT INFORMATION
  Report Type: Spontaneous
  Country: ES (occurrence: ES)
  Receive Date: 20200625
  Receipt Date: 20200625
  Transmission Date: 20200714
  Serious: Yes (Death, Other)
  Sender: FDA-Public Use
  Company Number: ES-SUN PHARMACEUTICAL INDUSTRIES LTD-2020RR-251531

PATIENT
  Age: 60 Year
  Sex: Female

DRUGS (3)
  1. PARACETAMOL [Suspect]
     Active Substance: ACETAMINOPHEN
     Indication: PRODUCT USED FOR UNKNOWN INDICATION
     Dosage: 7 GR ; IN TOTAL
     Route: 048
     Dates: start: 20200517, end: 20200517
  2. CLORAZEPATO DIPOTASIO (648DK) [Interacting]
     Active Substance: CLORAZEPATE DIPOTASSIUM
     Indication: PRODUCT USED FOR UNKNOWN INDICATION
     Dosage: 50 MG ; IN TOTAL
     Route: 048
     Dates: start: 20200517, end: 20200517
  3. TIAPRIZAL 100 MG COMPRIMIDOS , 24 COMPRIMIDOS [Interacting]
     Active Substance: TIAPRIDE
     Indication: PRODUCT USED FOR UNKNOWN INDICATION
     Dosage: 5 CPS ; IN TOTAL
     Route: 048
     Dates: start: 20200517, end: 20200517

REACTIONS (6)
  - Hypotension [Fatal]
  - Depressed level of consciousness [Fatal]
  - Acute hepatic failure [Fatal]
  - Suicide attempt [Fatal]
  - Metabolic acidosis [Fatal]
  - Bradycardia [Fatal]

NARRATIVE: CASE EVENT DATE: 20200517
